FAERS Safety Report 7558187-8 (Version None)
Quarter: 2011Q2

REPORT INFORMATION
  Report Type: 
  Country: None (occurrence: None)
  Receive Date: 20110620
  Receipt Date: 20110606
  Transmission Date: 20111010
  Serious: Yes (Hospitalization, Other)
  Sender: FDA-Public Use
  Company Number: DK-SANOFI-AVENTIS-2011SA025283

PATIENT
  Age: 54 Year
  Sex: Female

DRUGS (1)
  1. MINIRIN [Suspect]
     Indication: HAEMORRHAGE PROPHYLAXIS
     Route: 065
     Dates: start: 20040101, end: 20040101

REACTIONS (2)
  - CEREBROVASCULAR ACCIDENT [None]
  - HEMIPARESIS [None]
